FAERS Safety Report 11063180 (Version 1)
Quarter: 2015Q2

REPORT INFORMATION
  Report Type: Spontaneous
  Country: CN (occurrence: CN)
  Receive Date: 20150424
  Receipt Date: 20150424
  Transmission Date: 20150821
  Serious: Yes (Other)
  Sender: FDA-Public Use
  Company Number: CN-PFIZER INC-2015138084

PATIENT
  Age: 34 Year
  Sex: Female
  Weight: 62 kg

DRUGS (2)
  1. VFEND [Suspect]
     Active Substance: VORICONAZOLE
     Indication: PYREXIA
     Dosage: 0.3 G, 2X/DAY
     Route: 041
     Dates: start: 20141115, end: 20141115
  2. VFEND [Suspect]
     Active Substance: VORICONAZOLE
     Dosage: 0.2 G, UNK
     Route: 041
     Dates: start: 20141116, end: 20141117

REACTIONS (1)
  - Mental disorder [Recovering/Resolving]

NARRATIVE: CASE EVENT DATE: 20141116
